FAERS Safety Report 10211879 (Version 3)
Quarter: 2014Q3

REPORT INFORMATION
  Report Type: Spontaneous
  Country: US (occurrence: US)
  Receive Date: 20140602
  Receipt Date: 20140827
  Transmission Date: 20150326
  Serious: Yes (Other)
  Sender: FDA-Public Use
  Company Number: US-AMGEN-USASP2014032572

PATIENT
  Age: 46 Year
  Sex: Female

DRUGS (1)
  1. ENBREL [Suspect]
     Active Substance: ETANERCEPT
     Indication: PSORIATIC ARTHROPATHY
     Dosage: 50 MG, QWK
     Route: 065
     Dates: start: 2013

REACTIONS (14)
  - Sneezing [Not Recovered/Not Resolved]
  - Cough [Not Recovered/Not Resolved]
  - Peripheral swelling [Not Recovered/Not Resolved]
  - Bronchitis [Recovered/Resolved]
  - Pain in extremity [Not Recovered/Not Resolved]
  - Back pain [Not Recovered/Not Resolved]
  - Sinusitis [Recovered/Resolved]
  - Injection site erythema [Not Recovered/Not Resolved]
  - Tooth infection [Recovered/Resolved]
  - Fungal infection [Recovered/Resolved]
  - Injection site pain [Not Recovered/Not Resolved]
  - Injection site rash [Not Recovered/Not Resolved]
  - Urinary tract infection [Recovered/Resolved]
  - Injection site reaction [Not Recovered/Not Resolved]

NARRATIVE: CASE EVENT DATE: 2013
